FAERS Safety Report 9985093 (Version 1)
Quarter: 2014Q1

REPORT INFORMATION
  Report Type: Report from Study
  Country: US (occurrence: US)
  Receive Date: 20140307
  Receipt Date: 20140307
  Transmission Date: 20141002
  Serious: No
  Sender: FDA-Public Use
  Company Number: US-ABBVIE-13P-163-1184642-00

PATIENT
  Age: 55 Year
  Sex: Female

DRUGS (14)
  1. HUMIRA [Suspect]
     Indication: RHEUMATOID ARTHRITIS
     Dates: start: 20131123
  2. GABAPENTIN [Concomitant]
     Indication: PAIN
     Dosage: UP TO 3 A DAY
  3. CLONIDINE [Concomitant]
     Indication: HYPERTENSION
  4. DIOVAN [Concomitant]
     Indication: HYPERTENSION
  5. ASPIRIN [Concomitant]
     Indication: PROPHYLAXIS
  6. VITAMIN D [Concomitant]
     Indication: NUTRITIONAL SUPPLEMENTATION
  7. VITAMIN B12 [Concomitant]
     Indication: NUTRITIONAL SUPPLEMENTATION
  8. HYDROXYCHLOROQUINE [Concomitant]
     Indication: RHEUMATOID ARTHRITIS
  9. FLEXERIL [Concomitant]
     Indication: MUSCLE RELAXANT THERAPY
  10. OMEPRAZOLE [Concomitant]
     Indication: GASTROOESOPHAGEAL REFLUX DISEASE
  11. MOBIC [Concomitant]
     Indication: RHEUMATOID ARTHRITIS
  12. KLOR-CON [Concomitant]
     Indication: BLOOD POTASSIUM DECREASED
  13. FOSAMAX [Concomitant]
     Indication: OSTEOPOROSIS
     Dosage: ONCE WEEKLY
  14. PRISTIQ [Concomitant]
     Indication: DEPRESSION

REACTIONS (9)
  - Dizziness [Not Recovered/Not Resolved]
  - Mucous stools [Not Recovered/Not Resolved]
  - Cough [Not Recovered/Not Resolved]
  - Unevaluable event [Not Recovered/Not Resolved]
  - Nausea [Not Recovered/Not Resolved]
  - Vomiting [Unknown]
  - Sinusitis [Not Recovered/Not Resolved]
  - Hypersensitivity [Not Recovered/Not Resolved]
  - Aphagia [Not Recovered/Not Resolved]
